FAERS Safety Report 5949505-2 (Version None)
Quarter: 2008Q4

REPORT INFORMATION
  Report Type: 
  Country: None (occurrence: None)
  Receive Date: 20081112
  Receipt Date: 20081105
  Transmission Date: 20090506
  Serious: Yes (Life-Threatening, Other)
  Sender: FDA-Public Use
  Company Number: PHHY2008BR27362

PATIENT
  Sex: Female

DRUGS (1)
  1. FEMARA [Suspect]
     Indication: BREAST CANCER
     Dosage: 2.5 MG, QD
     Route: 048

REACTIONS (11)
  - BLEPHARITIS [None]
  - DRY EYE [None]
  - ERYTHEMA [None]
  - EYE IRRITATION [None]
  - EYE PRURITUS [None]
  - FEELING ABNORMAL [None]
  - FEELING HOT [None]
  - HYPERHIDROSIS [None]
  - OCULAR HYPERAEMIA [None]
  - SUPRAVENTRICULAR TACHYCARDIA [None]
  - WEIGHT INCREASED [None]
